FAERS Safety Report 4634708-X (Version None)
Quarter: 2005Q2

REPORT INFORMATION
  Report Type: 
  Country: None (occurrence: None)
  Receive Date: 20050412
  Receipt Date: 20050331
  Transmission Date: 20051028
  Serious: Yes (Other)
  Sender: FDA-Public Use
  Company Number: 2004115149

PATIENT
  Age: 81 Year
  Sex: Female

DRUGS (9)
  1. NEURONTIN [Suspect]
     Indication: PARAESTHESIA
     Dosage: 300 MG (300 MG, 1 IN 1 D), ORAL
     Route: 048
     Dates: start: 20040101
  2. ATORVASTATIN CALCIUM [Concomitant]
  3. CITALOPRAM HYDROBROMIDE [Concomitant]
  4. THEOPHYLLINE [Concomitant]
  5. DILTIAZEM HYDROCHLORIDE [Concomitant]
  6. CIMICIFUGA RACEMOSA ROOT (CIMICIFUGA RACEMOSA ROOT) [Concomitant]
  7. SPIRONOLACTONE [Concomitant]
  8. FLUTICASONE PROPIONATE [Concomitant]
  9. SALMETEROL XINAFOATE (SALMETEROL XINAFOATE) [Concomitant]

REACTIONS (6)
  - CAROTID ARTERY STENOSIS [None]
  - DIZZINESS [None]
  - DYSPHAGIA [None]
  - HALLUCINATION [None]
  - HEADACHE [None]
  - VERTIGO [None]
